FAERS Safety Report 5025709-0 (Version None)
Quarter: 2006Q2

REPORT INFORMATION
  Report Type: 
  Country: None (occurrence: None)
  Receive Date: 20060608
  Receipt Date: 19961022
  Transmission Date: 20061013
  Serious: Yes (Hospitalization)
  Sender: FDA-Public Use
  Company Number: 96-08-0716

PATIENT
  Sex: Female

DRUGS (9)
  1. ETHYOL [Suspect]
     Indication: ADVERSE DRUG REACTION
     Dosage: INTRAVENOUS
     Route: 042
     Dates: start: 19960801, end: 19960801
  2. CISPLATIN [Suspect]
     Indication: OVARIAN CANCER
     Dosage: INTRAPERITONEAL
     Dates: start: 19960501, end: 19960501
  3. CISPLATIN [Suspect]
     Indication: OVARIAN CANCER
     Dosage: INTRAPERITONEAL
     Dates: start: 19960801, end: 19960801
  4. CISPLATIN [Suspect]
     Indication: OVARIAN CANCER
     Dosage: INTRAPERITONEAL
     Dates: start: 19960501
  5. TAXOL [Suspect]
     Indication: OVARIAN CANCER
     Dosage: INTRAVENOUS
     Route: 042
     Dates: start: 19960501, end: 19960501
  6. TAXOL [Suspect]
     Indication: OVARIAN CANCER
     Dosage: INTRAVENOUS
     Route: 042
     Dates: start: 19960801, end: 19960801
  7. TAXOL [Suspect]
     Indication: OVARIAN CANCER
     Dosage: INTRAVENOUS
     Route: 042
     Dates: start: 19960501
  8. NORVASC [Concomitant]
  9. PROZAC [Concomitant]

REACTIONS (2)
  - RENAL FAILURE ACUTE [None]
  - URINARY TRACT INFECTION [None]
